FAERS Safety Report 21668811 (Version 2)
Quarter: 2023Q1

REPORT INFORMATION
  Report Type: Spontaneous
  Country: CH (occurrence: CH)
  Receive Date: 20221201
  Receipt Date: 20230106
  Transmission Date: 20230417
  Serious: Yes (Life-Threatening, Hospitalization, Other)
  Sender: FDA-Public Use
  Company Number: CH-PFIZER INC-PV202200110700

PATIENT
  Age: 17 Year
  Sex: Female
  Weight: 58.2 kg

DRUGS (10)
  1. CYTARABINE [Suspect]
     Active Substance: CYTARABINE
     Indication: Acute leukaemia
     Dosage: 40 MG
     Route: 037
     Dates: start: 20220907, end: 20220907
  2. CYTARABINE [Suspect]
     Active Substance: CYTARABINE
     Dosage: 40 MG
     Route: 037
     Dates: start: 20220914, end: 20220914
  3. CYTARABINE [Suspect]
     Active Substance: CYTARABINE
     Dosage: 30 MG
     Dates: start: 20221028, end: 20221028
  4. CYTARABINE [Suspect]
     Active Substance: CYTARABINE
     Dosage: 30 MG
     Dates: start: 20221029, end: 20221029
  5. CYTARABINE [Suspect]
     Active Substance: CYTARABINE
     Dosage: 2G/M2 2X/DAY
     Route: 042
     Dates: start: 20221104, end: 20221106
  6. DEXAMETHASONE [Suspect]
     Active Substance: DEXAMETHASONE
     Indication: Acute leukaemia
     Dosage: 10 MG, 2X/DAY
     Route: 048
     Dates: start: 20221104, end: 20221105
  7. CANCIDAS [Concomitant]
     Active Substance: CASPOFUNGIN ACETATE
     Indication: Hepatosplenic candidiasis
     Dosage: 50 MG, DAILY
     Route: 042
     Dates: start: 20221015
  8. BACTRIM [Concomitant]
     Active Substance: SULFAMETHOXAZOLE\TRIMETHOPRIM
     Indication: Antifungal prophylaxis
     Dosage: 3X PER WEEK ON MONDAYS, WEDNESDAYS AND FRIDAYS
     Route: 048
     Dates: start: 202208
  9. LEUPROLIDE ACETATE [Concomitant]
     Active Substance: LEUPROLIDE ACETATE
     Dosage: 3.75 MG
     Route: 058
     Dates: start: 202209
  10. MINERALS\VITAMINS [Concomitant]
     Active Substance: MINERALS\VITAMINS
     Dosage: UNK, 1X/DAY
     Route: 048

REACTIONS (2)
  - Small intestinal perforation [Recovered/Resolved with Sequelae]
  - Peritonitis [Recovered/Resolved]

NARRATIVE: CASE EVENT DATE: 20221106
